FAERS Safety Report 16831750 (Version 1)
Quarter: 2019Q4

REPORT INFORMATION
  Report Type: Spontaneous
  Country: US (occurrence: US)
  Receive Date: 20190919
  Receipt Date: 20190919
  Transmission Date: 20200122
  Serious: Yes (Death)
  Sender: FDA-Public Use
  Company Number: None

PATIENT
  Age: 68 Year
  Sex: Female

DRUGS (6)
  1. MEGESTROL [Concomitant]
     Active Substance: MEGESTROL
  2. CAPECITABINE. [Suspect]
     Active Substance: CAPECITABINE
     Indication: BREAST CANCER
     Route: 048
     Dates: start: 20190619, end: 20190909
  3. METHYLPRED [Concomitant]
     Active Substance: METHYLPREDNISOLONE
  4. LEVOFLOXACIN. [Concomitant]
     Active Substance: LEVOFLOXACIN
  5. PROAIR HFA [Concomitant]
     Active Substance: ALBUTEROL SULFATE
  6. VALACYCLOVIR [Concomitant]
     Active Substance: VALACYCLOVIR HYDROCHLORIDE

REACTIONS (1)
  - Death [None]

NARRATIVE: CASE EVENT DATE: 20190909
